FAERS Safety Report 16981329 (Version 1)
Quarter: 2019Q4

REPORT INFORMATION
  Report Type: Spontaneous
  Country: JP (occurrence: JP)
  Receive Date: 20191031
  Receipt Date: 20191031
  Transmission Date: 20200122
  Serious: Yes (Other)
  Sender: FDA-Public Use
  Company Number: JP-ABBVIE-19P-087-2985525-00

PATIENT
  Age: 86 Year
  Sex: Male

DRUGS (1)
  1. LEUPLIN [Suspect]
     Active Substance: LEUPROLIDE ACETATE
     Indication: PROSTATE CANCER STAGE IV
     Route: 065

REACTIONS (4)
  - Pulmonary thrombosis [Unknown]
  - Cardiac disorder [Unknown]
  - Prostatic specific antigen increased [Unknown]
  - Pulmonary oedema [Unknown]
